FAERS Safety Report 16811852 (Version 1)
Quarter: 2019Q3

REPORT INFORMATION
  Report Type: Report from Study
  Country: US (occurrence: US)
  Receive Date: 20190916
  Receipt Date: 20190916
  Transmission Date: 20191005
  Serious: Yes (Other)
  Sender: FDA-Public Use
  Company Number: US-ASTRAZENECA-2019SF09287

PATIENT
  Age: 71 Year
  Sex: Male
  Weight: 83.3 kg

DRUGS (10)
  1. TRAMADOL HYDROCHLORIDE. [Concomitant]
     Active Substance: TRAMADOL HYDROCHLORIDE
  2. CALQUENCE [Suspect]
     Active Substance: ACALABRUTINIB
     Indication: DIFFUSE LARGE B-CELL LYMPHOMA
     Route: 048
     Dates: start: 20190515
  3. EMLA [Concomitant]
     Active Substance: LIDOCAINE\PRILOCAINE
  4. PREDNISONE. [Concomitant]
     Active Substance: PREDNISONE
     Dosage: 10.0MG UNKNOWN
     Dates: start: 20190506, end: 20190527
  5. PROTONIX [Concomitant]
     Active Substance: PANTOPRAZOLE SODIUM
  6. CELEBREX [Concomitant]
     Active Substance: CELECOXIB
  7. LISINOPRIL. [Suspect]
     Active Substance: LISINOPRIL
     Dosage: DOSAGE UNKNOWN
     Route: 048
  8. CALQUENCE [Suspect]
     Active Substance: ACALABRUTINIB
     Indication: DIFFUSE LARGE B-CELL LYMPHOMA
     Route: 048
     Dates: start: 20190514
  9. CICLOPIROX OLAMINE. [Concomitant]
     Active Substance: CICLOPIROX OLAMINE
  10. ASPIRIN EC [Concomitant]
     Active Substance: ASPIRIN

REACTIONS (3)
  - Headache [Recovering/Resolving]
  - Full blood count decreased [Unknown]
  - Nightmare [Unknown]
